FAERS Safety Report 7860058-4 (Version None)
Quarter: 2011Q4

REPORT INFORMATION
  Report Type: 
  Country: None (occurrence: None)
  Receive Date: 20111025
  Receipt Date: 20111010
  Transmission Date: 20120403
  Serious: Yes (Life-Threatening, Hospitalization)
  Sender: FDA-Public Use
  Company Number: 2011AP002366

PATIENT
  Age: 52 Year
  Sex: Female

DRUGS (6)
  1. CITALOPRAM HYDROBROMIDE [Suspect]
     Dosage: 70 MG;   ; PO;
     Route: 048
  2. AMITRIPTYLINE HCL [Suspect]
     Dosage: 350 MG;   ; PO;
     Route: 048
  3. TEMAZEPAM [Suspect]
     Dosage: 70 MG;  ; PO;
     Route: 048
  4. DIAZEPAM [Suspect]
     Dosage: 35 MG;   ; PO;
     Route: 048
  5. DIHYDROCODEINE BITARTRATE INJ [Suspect]
     Dosage: 840 MG;  ; PO;
     Route: 048
  6. DILTIAZEM [Suspect]
     Dosage: 1680 MG;  ; PO;
     Route: 048

REACTIONS (7)
  - COMA SCALE ABNORMAL [None]
  - PNEUMONIA ASPIRATION [None]
  - HEART RATE DECREASED [None]
  - BLOOD PRESSURE DECREASED [None]
  - ATRIOVENTRICULAR BLOCK COMPLETE [None]
  - MULTIPLE DRUG OVERDOSE [None]
  - RESPIRATORY RATE DECREASED [None]
